FAERS Safety Report 5796613-5 (Version None)
Quarter: 2008Q3

REPORT INFORMATION
  Report Type: 
  Country: None (occurrence: None)
  Receive Date: 20080701
  Receipt Date: 20080620
  Transmission Date: 20090109
  Serious: Yes (Life-Threatening)
  Sender: FDA-Public Use
  Company Number: TH-ROCHE-571679

PATIENT
  Age: 45 Year
  Sex: Female
  Weight: 25 kg

DRUGS (6)
  1. OSELTAMIVIR [Suspect]
     Indication: INFLUENZA
     Dosage: DATE OF LAST DOSE PRIOR TO SAE REPORTED AS 20/06/08
     Route: 065
     Dates: start: 20080618
  2. BLINDED OSELTAMIVIR [Suspect]
     Indication: INFLUENZA
     Dosage: DATE OF LAST DOSE PRIOR TO SAE REPORTED AS 20/06/08
     Route: 065
     Dates: start: 20080618
  3. ACETAMINOPHEN [Concomitant]
     Dosage: REPORTED AS PRN
     Route: 048
     Dates: start: 20080618
  4. CEFTRIAXONE [Concomitant]
     Dosage: FREQUENCY REPORTED AS ONCE DAILY. INDICATION REPORTED AS; FOR COVER CAP
     Route: 042
     Dates: start: 20080618
  5. CLARITHROMYCIN [Concomitant]
     Dosage: FREQUENCY REPORTED AS TWICE A DAY. INDICATION REPORTED AS; FOR COVER CAP
     Route: 048
     Dates: start: 20080618
  6. BISOLVON [Concomitant]
     Route: 048
     Dates: start: 20080618

REACTIONS (1)
  - RESPIRATORY FAILURE [None]
